FAERS Safety Report 7994557-1 (Version None)
Quarter: 2011Q4

REPORT INFORMATION
  Report Type: 
  Country: None (occurrence: None)
  Receive Date: 20111220
  Receipt Date: 20111216
  Transmission Date: 20120403
  Serious: Yes (Other)
  Sender: FDA-Public Use
  Company Number: KR-PFIZER INC-2011307070

PATIENT

DRUGS (1)
  1. NEURONTIN [Suspect]
     Indication: HERPES ZOSTER
     Dosage: UNK
     Route: 048

REACTIONS (1)
  - NEOPLASM MALIGNANT [None]
